FAERS Safety Report 25960993 (Version 2)
Quarter: 2025Q4

REPORT INFORMATION
  Report Type: Report from Study
  Country: CA (occurrence: CA)
  Receive Date: 20251027
  Receipt Date: 20251118
  Transmission Date: 20260117
  Serious: Yes (Hospitalization, Other)
  Sender: ALEXION PHARMACEUTICALS
  Company Number: CA-AstraZeneca-CH-00976089A

PATIENT
  Sex: Female

DRUGS (1)
  1. ANIFROLUMAB [Suspect]
     Active Substance: ANIFROLUMAB
     Indication: Systemic lupus erythematosus
     Dosage: 300 MILLIGRAM, Q4W
     Dates: start: 20250923

REACTIONS (11)
  - Aortic aneurysm rupture [Unknown]
  - Abdominal tenderness [Unknown]
  - Internal haemorrhage [Unknown]
  - International normalised ratio decreased [Unknown]
  - Vascular fragility [Unknown]
  - Arterial rupture [Unknown]
  - Thrombosis [Unknown]
  - Chronic obstructive pulmonary disease [Unknown]
  - Contusion [Unknown]
  - Swelling [Unknown]
  - Haematoma [Unknown]
